FAERS Safety Report 13214761 (Version 4)
Quarter: 2017Q2

REPORT INFORMATION
  Report Type: Other
  Country: IT (occurrence: IT)
  Receive Date: 20170210
  Receipt Date: 20170413
  Transmission Date: 20170830
  Serious: Yes (Life-Threatening, Other)
  Sender: FDA-Public Use
  Company Number: IT-SEATTLE GENETICS-2017SGN00241

PATIENT

DRUGS (4)
  1. ADCETRIS [Suspect]
     Active Substance: BRENTUXIMAB VEDOTIN
     Indication: HODGKIN^S DISEASE
  2. SOLDESAM [Concomitant]
     Active Substance: DEXAMETHASONE
     Indication: PREMEDICATION
     Dosage: UNK
  3. PARACETAMOL [Concomitant]
     Active Substance: ACETAMINOPHEN
     Indication: PREMEDICATION
     Dosage: UNK
  4. ADCETRIS [Suspect]
     Active Substance: BRENTUXIMAB VEDOTIN
     Indication: HODGKIN^S DISEASE MIXED CELLULARITY RECURRENT
     Dosage: 110 MG, UNK
     Route: 042
     Dates: start: 20170202, end: 20170202

REACTIONS (10)
  - Anaphylactic shock [Recovering/Resolving]
  - Laryngeal oedema [Recovering/Resolving]
  - Rash generalised [Recovering/Resolving]
  - Pruritus [Recovering/Resolving]
  - Dyspnoea [Recovering/Resolving]
  - Infusion related reaction [Recovering/Resolving]
  - Cardiac arrest [Recovering/Resolving]
  - Cyanosis [Recovering/Resolving]
  - Pulse absent [Recovering/Resolving]
  - Syncope [Recovering/Resolving]

NARRATIVE: CASE EVENT DATE: 20170202
